FAERS Safety Report 24617013 (Version 1)
Quarter: 2024Q4

REPORT INFORMATION
  Report Type: Spontaneous
  Country: PL (occurrence: PL)
  Receive Date: 20241114
  Receipt Date: 20241114
  Transmission Date: 20250115
  Serious: Yes (Other)
  Sender: ALEXION PHARMACEUTICALS
  Company Number: PL-ASTRAZENECA-202411EEA004011PL

PATIENT
  Age: 67 Year

DRUGS (2)
  1. CALQUENCE [Suspect]
     Active Substance: ACALABRUTINIB
     Dosage: 100 UNK, BID
  2. SULPHAMETHIZOLE [Concomitant]
     Indication: Hyperthyroidism

REACTIONS (3)
  - Hypertension [Unknown]
  - Hyperthyroidism [Unknown]
  - Upper respiratory tract infection [Unknown]
